FAERS Safety Report 7762546-8 (Version None)
Quarter: 2011Q3

REPORT INFORMATION
  Report Type: 
  Country: None (occurrence: None)
  Receive Date: 20110920
  Receipt Date: 20110915
  Transmission Date: 20111222
  Serious: No
  Sender: FDA-Public Use
  Company Number: US-PFIZER INC-2011219884

PATIENT
  Sex: Female

DRUGS (3)
  1. ADIPEX [Interacting]
     Dosage: UNK
  2. ZOLOFT [Concomitant]
     Dosage: UNK
  3. CHANTIX [Suspect]
     Dosage: UNK

REACTIONS (2)
  - ABNORMAL BEHAVIOUR [None]
  - DRUG INTERACTION [None]
